FAERS Safety Report 5819684-6 (Version None)
Quarter: 2008Q3

REPORT INFORMATION
  Report Type: 
  Country: None (occurrence: None)
  Receive Date: 20080718
  Receipt Date: 20080702
  Transmission Date: 20090109
  Serious: Yes (Hospitalization)
  Sender: FDA-Public Use
  Company Number: DSA_32100_2008

PATIENT
  Age: 54 Year
  Sex: Male

DRUGS (6)
  1. LORAZEPAM [Suspect]
     Indication: DRUG USE FOR UNKNOWN INDICATION
     Dosage: (2.5 MG 1X ORAL)
     Route: 048
     Dates: start: 20080701, end: 20080701
  2. BELOC ZOK (BELOC ZOK - METOPROLOL SUCCINATE) (NOT SPECIFIED) [Suspect]
     Indication: DRUG USE FOR UNKNOWN INDICATION
     Dosage: (47.5 MG 1X ORAL)
     Route: 048
     Dates: start: 20080701, end: 20080701
  3. LAMICTAL [Suspect]
     Indication: DRUG USE FOR UNKNOWN INDICATION
     Dosage: (300 MG 1X ORAL)
     Route: 048
     Dates: start: 20080701, end: 20080701
  4. ORFIRIL /00228502/ (ORFIRIL - VALPROATE SODIUM) (NOT SPECIFIED) [Suspect]
     Indication: DRUG USE FOR UNKNOWN INDICATION
     Dosage: (300 MG 1X ORAL)
     Route: 048
     Dates: start: 20080701, end: 20080701
  5. RISPERDAL [Suspect]
     Indication: DRUG USE FOR UNKNOWN INDICATION
     Dosage: (1 DF 1X ORAL)
     Route: 048
     Dates: start: 20080701, end: 20080701
  6. TRUXAL /00012102/ (TRUXAL - CHLORPROTHIXENE HYDROCHLORIDE) (NOT SPECIF [Suspect]
     Indication: DRUG USE FOR UNKNOWN INDICATION
     Dosage: (50 MG 1X ORAL)
     Route: 048
     Dates: start: 20080701, end: 20080701

REACTIONS (4)
  - FATIGUE [None]
  - HYPOTENSION [None]
  - INCORRECT DOSE ADMINISTERED [None]
  - WRONG DRUG ADMINISTERED [None]
